FAERS Safety Report 5179053-1 (Version None)
Quarter: 2006Q4

REPORT INFORMATION
  Report Type: 
  Country: None (occurrence: None)
  Receive Date: 20061208
  Receipt Date: 20061129
  Transmission Date: 20070319
  Serious: Yes (Hospitalization)
  Sender: FDA-Public Use
  Company Number: 2006-151335-NL

PATIENT
  Age: 38 Year
  Sex: Female

DRUGS (4)
  1. CHORIONIC GONADOTROPIN [Suspect]
     Dosage: 10000 IU ONCE
     Route: 058
     Dates: start: 20050711
  2. PROGESTERONE [Concomitant]
  3. LEUPRORELIN [Suspect]
     Dosage: 1.77 MG ONCE
     Route: 058
     Dates: start: 20050615
  4. UROFOLLITROPIN [Suspect]
     Route: 058
     Dates: start: 20050701, end: 20050710

REACTIONS (4)
  - ABDOMINAL PAIN [None]
  - ASCITES [None]
  - DYSPNOEA [None]
  - PLEURAL EFFUSION [None]
